FAERS Safety Report 5352883-9 (Version None)
Quarter: 2007Q2

REPORT INFORMATION
  Report Type: 
  Country: None (occurrence: None)
  Receive Date: 20070518
  Receipt Date: 20070417
  Transmission Date: 20071010
  Serious: No
  Sender: FDA-Public Use
  Company Number: TPA2007A00807

PATIENT
  Age: 58 Year
  Sex: Female
  Weight: 71.6683 kg

DRUGS (7)
  1. ROZEREM [Suspect]
     Indication: INSOMNIA
     Dosage: 8 MG, HS, PER ORAL
     Route: 048
     Dates: start: 20070415
  2. CERTIA XT(DILTIAZEM) [Concomitant]
  3. TENORMIN [Concomitant]
  4. CELEBREX [Concomitant]
  5. ZOLOFT [Concomitant]
  6. XANAX [Concomitant]
  7. AMBIEN [Concomitant]

REACTIONS (1)
  - INITIAL INSOMNIA [None]
